FAERS Safety Report 8557075-8 (Version None)
Quarter: 2012Q3

REPORT INFORMATION
  Report Type: 
  Country: None (occurrence: None)
  Receive Date: 20120726
  Receipt Date: 20120726
  Transmission Date: 20120928
  Serious: Yes (Other)
  Sender: FDA-Public Use
  Company Number: None

PATIENT
  Age: 67 Year
  Sex: Male
  Weight: 95 kg

DRUGS (2)
  1. PEGINTERFERON ALFA-2A [Suspect]
     Indication: HEPATITIS C
     Dosage: 135 MCG QWEEK SQ
     Route: 058
     Dates: start: 20111223, end: 20120321
  2. BOCEPREVIR [Suspect]
     Indication: HEPATITIS C
     Dosage: 800 MG MG TID PO
     Route: 048
     Dates: start: 20120120, end: 20120321

REACTIONS (1)
  - TREATMENT FAILURE [None]
